FAERS Safety Report 9173850 (Version 2)
Quarter: 2013Q2

REPORT INFORMATION
  Report Type: Spontaneous
  Country: ZA (occurrence: ZA)
  Receive Date: 20130320
  Receipt Date: 20130429
  Transmission Date: 20140414
  Serious: Yes (Other)
  Sender: FDA-Public Use
  Company Number: ZA-COVIDIEN/TYCO HEALTHCARE/MALLINCKRODT-T201301361

PATIENT
  Sex: Male

DRUGS (5)
  1. EXALGO EXTENDED RELEASE [Suspect]
     Indication: BACK PAIN
     Dosage: ONCE DAILY
     Route: 048
  2. TRAMACET [Suspect]
     Indication: BACK PAIN
     Route: 048
  3. CELEBREX [Concomitant]
     Route: 048
  4. NEURONTIN [Concomitant]
     Dosage: UNK
     Route: 048
  5. CYMGEN [Concomitant]
     Dosage: UNK
     Route: 048

REACTIONS (1)
  - Loss of consciousness [Unknown]
